FAERS Safety Report 7249918-5 (Version None)
Quarter: 2011Q1

REPORT INFORMATION
  Report Type: 
  Country: None (occurrence: None)
  Receive Date: 20110128
  Receipt Date: 20100303
  Transmission Date: 20110831
  Serious: No
  Sender: FDA-Public Use
  Company Number: A0880692A

PATIENT
  Age: 50 Year
  Sex: Male

DRUGS (2)
  1. UNSPECIFIED MEDICATION [Concomitant]
  2. WELLBUTRIN XL [Suspect]
     Dosage: 300MG PER DAY
     Route: 048

REACTIONS (2)
  - HYPERTENSION [None]
  - WEIGHT INCREASED [None]
